FAERS Safety Report 9770425 (Version 1)
Quarter: 2013Q4

REPORT INFORMATION
  Report Type: Spontaneous
  Country: FI (occurrence: FI)
  Receive Date: 20131218
  Receipt Date: 20131218
  Transmission Date: 20140711
  Serious: Yes (Other)
  Sender: FDA-Public Use
  Company Number: FI-MERCK-1312FIN007247

PATIENT
  Sex: Male

DRUGS (1)
  1. SINEMET DEPOT [Suspect]
     Dosage: 50MG/200MG
     Dates: start: 2011

REACTIONS (4)
  - Asphyxia [Unknown]
  - Increased upper airway secretion [Not Recovered/Not Resolved]
  - Oropharyngeal pain [Not Recovered/Not Resolved]
  - Obstructive airways disorder [Unknown]
